FAERS Safety Report 7370168-6 (Version None)
Quarter: 2011Q1

REPORT INFORMATION
  Report Type: 
  Country: None (occurrence: None)
  Receive Date: 20110323
  Receipt Date: 20101015
  Transmission Date: 20110831
  Serious: No
  Sender: FDA-Public Use
  Company Number: US-ASTRAZENECA-2010SE48843

PATIENT
  Age: 923 Month
  Sex: Female

DRUGS (1)
  1. LISINOPRIL [Suspect]
     Route: 048
     Dates: start: 20091001

REACTIONS (3)
  - DIABETES MELLITUS [None]
  - COUGH [None]
  - HAEMORRHAGE [None]
